FAERS Safety Report 10568178 (Version 4)
Quarter: 2015Q1

REPORT INFORMATION
  Report Type: Spontaneous
  Country: SE (occurrence: SE)
  Receive Date: 20141106
  Receipt Date: 20150113
  Transmission Date: 20150720
  Serious: Yes (Other)
  Sender: FDA-Public Use
  Company Number: SE-ASTELLAS-2014EU013885

PATIENT
  Sex: Female

DRUGS (8)
  1. OMEGA 3/OMEGA 6 [Concomitant]
     Indication: PRODUCT USED FOR UNKNOWN INDICATION
     Dosage: UNK,DAILY
     Route: 048
  2. BETMIGA [Suspect]
     Active Substance: MIRABEGRON
     Indication: HYPERTONIC BLADDER
     Dosage: 50 MG (25 MG TABLET X 2), ONCE DAILY IN MORNING
     Route: 048
     Dates: start: 20141007, end: 20141026
  3. ALVEDON [Concomitant]
     Active Substance: ACETAMINOPHEN
     Indication: PAIN
     Dosage: UNK UNK, AS NEEDED
     Route: 048
  4. VESICARE [Suspect]
     Active Substance: SOLIFENACIN SUCCINATE
     Indication: HYPERTONIC BLADDER
     Route: 048
     Dates: start: 2009, end: 20141006
  5. VITAMIN D                          /00107901/ [Concomitant]
     Active Substance: ERGOCALCIFEROL
     Indication: PRODUCT USED FOR UNKNOWN INDICATION
     Dosage: UNK, DAILY
     Route: 048
  6. STILNOCT [Concomitant]
     Active Substance: ZOLPIDEM TARTRATE
     Indication: SLEEP DISORDER
     Dosage: UNK UNK, AS NEEDED
     Route: 048
  7. MULTI-VITAMINES [Concomitant]
     Indication: PRODUCT USED FOR UNKNOWN INDICATION
     Dosage: UNK, DAILY
     Route: 048
  8. CITODON                            /00116401/ [Concomitant]
     Indication: PAIN
     Dosage: UNK UNK, AS NEEDED
     Route: 048

REACTIONS (11)
  - Muscle spasms [Recovered/Resolved]
  - Cold sweat [Recovered/Resolved]
  - Ear discomfort [Not Recovered/Not Resolved]
  - Feeling hot [Recovered/Resolved]
  - Swelling [Recovered/Resolved]
  - Swollen tongue [Recovering/Resolving]
  - Dizziness [Not Recovered/Not Resolved]
  - Dry mouth [Recovered/Resolved]
  - Pharyngeal oedema [Recovering/Resolving]
  - Malaise [Not Recovered/Not Resolved]
  - Tooth injury [Not Recovered/Not Resolved]

NARRATIVE: CASE EVENT DATE: 201410
